FAERS Safety Report 4667498-5 (Version None)
Quarter: 2005Q2

REPORT INFORMATION
  Report Type: 
  Country: None (occurrence: None)
  Receive Date: 20050519
  Receipt Date: 20050519
  Transmission Date: 20051028
  Serious: Yes (Hospitalization)
  Sender: FDA-Public Use
  Company Number: None

PATIENT
  Age: 23 Year
  Sex: Female
  Weight: 61.2356 kg

DRUGS (14)
  1. CELLCEPT [Suspect]
     Indication: IMMUNOSUPPRESSANT DRUG THERAPY
     Dosage: CELL CEPT   1000MG BID   ORAL;  250 MG BID ORAL
     Route: 048
     Dates: start: 20000615, end: 20031115
  2. ATENOLOL [Concomitant]
  3. LIPITOR [Concomitant]
  4. COZAAR [Concomitant]
  5. DIATX [Concomitant]
  6. PREDNISONE TAB [Concomitant]
  7. CYCLOSPORINE [Concomitant]
  8. ASACOL [Concomitant]
  9. EPOGEN [Concomitant]
  10. PREVACID [Concomitant]
  11. FUROSEMIDE [Concomitant]
  12. VERAPAMIL [Concomitant]
  13. NORVASC [Concomitant]
  14. CALTRATE [Concomitant]

REACTIONS (4)
  - ABDOMINAL PAIN LOWER [None]
  - ANAEMIA [None]
  - NAUSEA [None]
  - VOMITING [None]
